FAERS Safety Report 19399422 (Version 1)
Quarter: 2021Q2

REPORT INFORMATION
  Report Type: Spontaneous
  Country: NL (occurrence: NL)
  Receive Date: 20210610
  Receipt Date: 20210610
  Transmission Date: 20210717
  Serious: Yes (Other)
  Sender: FDA-Public Use
  Company Number: NL-BAUSCH-BL-2021-019859

PATIENT
  Age: 48 Year
  Sex: Female
  Weight: 72 kg

DRUGS (1)
  1. HYDROCORTISON INJVLST 5MG/ML [Suspect]
     Active Substance: HYDROCORTISONE
     Indication: INFLAMMATION
     Dosage: INJECTION IN SHOULDER (TOTAL)
     Route: 065
     Dates: start: 20210511

REACTIONS (1)
  - Monoplegia [Recovering/Resolving]

NARRATIVE: CASE EVENT DATE: 20210511
